FAERS Safety Report 23223456 (Version 1)
Quarter: 2023Q4

REPORT INFORMATION
  Report Type: Spontaneous
  Country: US (occurrence: US)
  Receive Date: 20231123
  Receipt Date: 20231123
  Transmission Date: 20240109
  Serious: Yes (Other)
  Sender: FDA-Public Use
  Company Number: US-ABBVIE-5507937

PATIENT

DRUGS (1)
  1. REFRESH PLUS [Suspect]
     Active Substance: CARBOXYMETHYLCELLULOSE SODIUM
     Indication: Product used for unknown indication
     Dosage: LUBRICANT EYE DROPS
     Route: 047
     Dates: end: 202311

REACTIONS (3)
  - Visual impairment [Unknown]
  - Eye irritation [Unknown]
  - Vision blurred [Unknown]
